FAERS Safety Report 11136685 (Version 1)
Quarter: 2015Q2

REPORT INFORMATION
  Report Type: Spontaneous
  Country: PR (occurrence: PR)
  Receive Date: 20150526
  Receipt Date: 20150526
  Transmission Date: 20150821
  Serious: No
  Sender: FDA-Public Use
  Company Number: PR-MALLINCKRODT-T201501835

PATIENT
  Sex: Female

DRUGS (1)
  1. H.P. ACTHAR [Suspect]
     Active Substance: CORTICOTROPIN
     Indication: FOCAL SEGMENTAL GLOMERULOSCLEROSIS
     Dosage: 80 UNITS TWICE WKLY
     Route: 065
     Dates: start: 20141121

REACTIONS (5)
  - Pain in extremity [Unknown]
  - Pain of skin [Unknown]
  - Toothache [Unknown]
  - Mood altered [Unknown]
  - Contusion [Unknown]
